FAERS Safety Report 14681492 (Version 2)
Quarter: 2018Q2

REPORT INFORMATION
  Report Type: Spontaneous
  Country: ES (occurrence: ES)
  Receive Date: 20180326
  Receipt Date: 20180521
  Transmission Date: 20180711
  Serious: Yes (Other)
  Sender: FDA-Public Use
  Company Number: ES-ALLERGAN-1809681US

PATIENT
  Age: 60 Year
  Sex: Male

DRUGS (2)
  1. COMBIGAN [Suspect]
     Active Substance: BRIMONIDINE TARTRATE\TIMOLOL MALEATE
     Indication: GLAUCOMA
     Dosage: 1 GTT, BID
     Route: 047
  2. TOBRADEX [Concomitant]
     Active Substance: DEXAMETHASONE\TOBRAMYCIN
     Indication: CONJUNCTIVITIS
     Dosage: UNK
     Dates: end: 201708

REACTIONS (8)
  - Accidental exposure to product [Unknown]
  - Retinal disorder [Unknown]
  - Amniotic membrane graft [Unknown]
  - Arrhythmia [Recovered/Resolved]
  - Vitrectomy [Unknown]
  - Dry eye [Recovered/Resolved]
  - Tachycardia [Recovered/Resolved]
  - Eye disorder [Unknown]

NARRATIVE: CASE EVENT DATE: 20160628
